FAERS Safety Report 6815023-2 (Version None)
Quarter: 2010Q3

REPORT INFORMATION
  Report Type: 
  Country: None (occurrence: None)
  Receive Date: 20100702
  Receipt Date: 20100624
  Transmission Date: 20110219
  Serious: Yes (Hospitalization)
  Sender: FDA-Public Use
  Company Number: JP-GENENTECH-303535

PATIENT
  Age: 55 Year
  Sex: Male

DRUGS (5)
  1. RITUXIMAB [Suspect]
     Indication: EXTRANODAL MARGINAL ZONE B-CELL LYMPHOMA (MALT TYPE)
     Dosage: 250 MG/M2, UNK
     Route: 042
     Dates: start: 20090819
  2. ZEVALIN [Suspect]
     Indication: EXTRANODAL MARGINAL ZONE B-CELL LYMPHOMA (MALT TYPE)
     Dosage: 14.8 MBQ/KG, UNK
     Route: 042
     Dates: start: 20090826
  3. INDIUM-111 IBRITUMOMAB TIUXETAN [Suspect]
     Indication: EXTRANODAL MARGINAL ZONE B-CELL LYMPHOMA (MALT TYPE)
     Dosage: 130 MBQ, UNK
     Route: 042
     Dates: start: 20090819
  4. UNKNOWN ANALGESIC [Concomitant]
     Indication: PREMEDICATION
     Dosage: UNK
     Dates: start: 20090819
  5. ANTIHISTAMINE (UNK INGREDIENTS) [Concomitant]
     Indication: PREMEDICATION
     Dosage: UNK
     Dates: start: 20090819

REACTIONS (2)
  - ADENOVIRUS INFECTION [None]
  - CYSTITIS HAEMORRHAGIC [None]
